FAERS Safety Report 22103208 (Version 2)
Quarter: 2023Q1

REPORT INFORMATION
  Report Type: Report from Study
  Country: CA (occurrence: None)
  Receive Date: 20230316
  Receipt Date: 20230327
  Transmission Date: 20230417
  Serious: Yes (Life-Threatening, Hospitalization)
  Sender: FDA-Public Use
  Company Number: 2023A061994

PATIENT
  Age: 817 Month
  Sex: Female
  Weight: 90.7 kg

DRUGS (6)
  1. ACALABRUTINIB [Suspect]
     Active Substance: ACALABRUTINIB
     Indication: Lymphoma
     Route: 048
     Dates: start: 20230209, end: 20230308
  2. NASTURTIUM OFFICINALE/SODIUM SULFATE/MYOSOTIS ARVENSIS/GERANIUM ROBERT [Concomitant]
     Indication: Hypothyroidism
     Route: 048
     Dates: start: 1984
  3. AMITRIPTYLINE [Concomitant]
     Active Substance: AMITRIPTYLINE
     Indication: Depression
     Dosage: 2 TABLETS
     Route: 048
     Dates: start: 19960601
  4. BUPROPION [Concomitant]
     Active Substance: BUPROPION
     Indication: Depression
     Route: 048
     Dates: start: 19960601
  5. ACETARSOL/NYSTATIN/NEOMYCIN/POLYMYXIN B SULFATE [Concomitant]
     Indication: Fungal infection
     Route: 048
     Dates: start: 2008
  6. BUDESONIDE FORMETEROL [Concomitant]
     Indication: Asthma
     Dosage: 1-2 PUFF,BID
     Route: 055
     Dates: start: 198406

REACTIONS (2)
  - Diarrhoea [Recovered/Resolved]
  - Hypokalaemia [Recovered/Resolved]

NARRATIVE: CASE EVENT DATE: 20230311
